FAERS Safety Report 9707891 (Version 1)
Quarter: 2013Q4

REPORT INFORMATION
  Report Type: Spontaneous
  Country: US (occurrence: None)
  Receive Date: 20131122
  Receipt Date: 20131122
  Transmission Date: 20140711
  Serious: No
  Sender: FDA-Public Use
  Company Number: None

PATIENT
  Sex: Female

DRUGS (1)
  1. ENBREL [Suspect]
     Dosage: 25 MG ONCE WEEKLY SUBCUTANEOUS
     Route: 058
     Dates: start: 20120615, end: 20131108

REACTIONS (1)
  - Tuberculosis [None]
